FAERS Safety Report 6298184-6 (Version None)
Quarter: 2009Q3

REPORT INFORMATION
  Report Type: 
  Country: None (occurrence: None)
  Receive Date: 20090805
  Receipt Date: 20090728
  Transmission Date: 20100115
  Serious: Yes (Hospitalization)
  Sender: FDA-Public Use
  Company Number: US-AVENTIS-200917830GDDC

PATIENT
  Age: 70 Year
  Sex: Male
  Weight: 61.23 kg

DRUGS (2)
  1. TAXOTERE [Suspect]
     Route: 042
     Dates: start: 20090427
  2. VIDAZA [Suspect]
     Route: 042
     Dates: start: 20090427

REACTIONS (3)
  - ANAEMIA [None]
  - HYPONATRAEMIA [None]
  - PYREXIA [None]
